FAERS Safety Report 6040310-8 (Version None)
Quarter: 2009Q1

REPORT INFORMATION
  Report Type: 
  Country: None (occurrence: None)
  Receive Date: 20090116
  Receipt Date: 20080212
  Transmission Date: 20090719
  Serious: No
  Sender: FDA-Public Use
  Company Number: US-BRISTOL-MYERS SQUIBB COMPANY-14074405

PATIENT
  Age: 31 Year
  Sex: Female

DRUGS (7)
  1. ABILIFY [Suspect]
     Indication: BIPOLAR DISORDER
     Dates: start: 20050719
  2. LAMICTAL [Concomitant]
  3. LEXAPRO [Concomitant]
  4. LORAZEPAM [Concomitant]
  5. WELLBUTRIN [Concomitant]
  6. SEROQUEL [Concomitant]
  7. GEODON [Concomitant]

REACTIONS (1)
  - TARDIVE DYSKINESIA [None]
